FAERS Safety Report 24149386 (Version 2)
Quarter: 2024Q3

REPORT INFORMATION
  Report Type: Report from Study
  Country: US (occurrence: US)
  Receive Date: 20240730
  Receipt Date: 20240828
  Transmission Date: 20241017
  Serious: Yes (Other)
  Sender: ABBVIE
  Company Number: US-ABBVIE-5854882

PATIENT
  Sex: Male

DRUGS (1)
  1. VENCLEXTA [Suspect]
     Active Substance: VENETOCLAX
     Indication: Lip neoplasm
     Dosage: STRENGTH: 100 MG?TAKE 1 TABLET BY MOUTH TWICE DAILY WITH FOOD AND A FULL GLASS OF WATER
     Route: 048

REACTIONS (4)
  - Skin lesion [Unknown]
  - Diarrhoea [Recovered/Resolved]
  - Neoplasm malignant [Unknown]
  - Adverse drug reaction [Recovered/Resolved]
